FAERS Safety Report 7243294-X (Version None)
Quarter: 2011Q1

REPORT INFORMATION
  Report Type: 
  Country: None (occurrence: None)
  Receive Date: 20110125
  Receipt Date: 20110113
  Transmission Date: 20110831
  Serious: Yes (Other)
  Sender: FDA-Public Use
  Company Number: US-ROCHE-754762

PATIENT
  Age: 57 Year
  Sex: Male

DRUGS (2)
  1. TORADOL [Suspect]
     Route: 065
  2. COUMADIN [Concomitant]

REACTIONS (2)
  - SUICIDAL IDEATION [None]
  - PULMONARY EMBOLISM [None]
